FAERS Safety Report 5167713-8 (Version None)
Quarter: 2006Q4

REPORT INFORMATION
  Report Type: 
  Country: None (occurrence: None)
  Receive Date: 20061208
  Receipt Date: 20061201
  Transmission Date: 20070319
  Serious: Yes (Hospitalization)
  Sender: FDA-Public Use
  Company Number: US-JNJFOC-20061201155

PATIENT
  Sex: Female
  Weight: 62.6 kg

DRUGS (6)
  1. INFLIXIMAB [Suspect]
     Indication: RHEUMATOID ARTHRITIS
     Route: 042
  2. CALCIUM PLUS D [Concomitant]
  3. IBUPROFEN [Concomitant]
  4. PREDNISONE TAB [Concomitant]
  5. FOSAMAX [Concomitant]
  6. PREVACID [Concomitant]

REACTIONS (1)
  - ENDOMETRIAL CANCER [None]
